FAERS Safety Report 10931133 (Version 1)
Quarter: 2015Q1

REPORT INFORMATION
  Report Type: Spontaneous
  Country: IN (occurrence: None)
  Receive Date: 20150317
  Receipt Date: 20150317
  Transmission Date: 20150721
  Serious: Yes (Other)
  Sender: FDA-Public Use
  Company Number: FK201501187

PATIENT
  Age: 50 Year
  Sex: Female

DRUGS (2)
  1. HYDROCORTISONE (HYDROCORTISONE) [Concomitant]
     Active Substance: HYDROCORTISONE
  2. DEXAMETHASONE INJECTION (MANUFACTURER UNKNOWN) (DEXAMETHASONE SODIUM PHOSPHATE) (DEXAMETHASONE SODIUM PHOSPHATE) [Suspect]
     Active Substance: DEXAMETHASONE
     Indication: PRODUCT USED FOR UNKNOWN INDICATION

REACTIONS (1)
  - Adrenocortical insufficiency acute [None]
